FAERS Safety Report 7512119-7 (Version None)
Quarter: 2011Q2

REPORT INFORMATION
  Report Type: 
  Country: None (occurrence: None)
  Receive Date: 20110520
  Receipt Date: 20110505
  Transmission Date: 20111010
  Serious: Yes (Other)
  Sender: FDA-Public Use
  Company Number: AUR-APL-2011-01599

PATIENT
  Age: 66 Year
  Sex: Female

DRUGS (2)
  1. MIRTAZAPINE [Suspect]
     Indication: RESTLESSNESS
     Dosage: 30MG-ORAL
     Route: 048
     Dates: start: 20110414, end: 20110414
  2. MIRTAZAPINE [Suspect]
     Indication: NERVOUSNESS
     Dosage: 30MG-ORAL
     Route: 048
     Dates: start: 20110414, end: 20110414

REACTIONS (3)
  - THROAT IRRITATION [None]
  - ORAL DISCOMFORT [None]
  - HYPOAESTHESIA ORAL [None]
